FAERS Safety Report 15432770 (Version 1)
Quarter: 2018Q3

REPORT INFORMATION
  Report Type: Spontaneous
  Country: JP (occurrence: JP)
  Receive Date: 20180927
  Receipt Date: 20180927
  Transmission Date: 20181010
  Serious: Yes (Other)
  Sender: FDA-Public Use
  Company Number: JP-TEVA-2018-JP-939402

PATIENT
  Age: 81 Year
  Sex: Male

DRUGS (5)
  1. AVOLVE [Concomitant]
     Active Substance: DUTASTERIDE
     Route: 065
  2. AZILECT [Suspect]
     Active Substance: RASAGILINE MESYLATE
     Indication: PARKINSON^S DISEASE
     Route: 048
     Dates: start: 20180709, end: 20180903
  3. BETANIS [Concomitant]
     Active Substance: MIRABEGRON
     Route: 065
  4. ZALUTIA [Concomitant]
     Active Substance: TADALAFIL
     Route: 065
  5. MIRAPEX [Concomitant]
     Active Substance: PRAMIPEXOLE DIHYDROCHLORIDE
     Route: 065

REACTIONS (3)
  - Pollakiuria [Recovering/Resolving]
  - Oedema [Unknown]
  - Urinary retention [Unknown]

NARRATIVE: CASE EVENT DATE: 20180723
